FAERS Safety Report 10151459 (Version 2)
Quarter: 2014Q2

REPORT INFORMATION
  Report Type: Spontaneous
  Country: JP (occurrence: JP)
  Receive Date: 20140503
  Receipt Date: 20140523
  Transmission Date: 20141212
  Serious: Yes (Other)
  Sender: FDA-Public Use
  Company Number: PHHY2014JP052916

PATIENT
  Age: 68 Year
  Sex: Male

DRUGS (6)
  1. EVEROLIMUS [Suspect]
     Indication: RENAL TRANSPLANT
     Dosage: 0.5 MG, PER DAY
     Route: 048
  2. EVEROLIMUS [Suspect]
     Dosage: 1.5 MG, PER DAY
  3. EVEROLIMUS [Suspect]
     Dosage: 2 MG, PERDAY
  4. TACROLIMUS [Suspect]
     Indication: IMMUNOSUPPRESSION
     Dosage: 1.0 MG, PER DAY
  5. MYCOPHENOLATE MOFETIL [Concomitant]
  6. BASILIXIMAB [Concomitant]

REACTIONS (4)
  - Toxicity to various agents [Unknown]
  - Renal disorder [Recovered/Resolved]
  - Renal injury [Unknown]
  - Proteinuria [Recovered/Resolved]
